FAERS Safety Report 14210353 (Version 1)
Quarter: 2017Q4

REPORT INFORMATION
  Report Type: Spontaneous
  Country: TR (occurrence: TR)
  Receive Date: 20171121
  Receipt Date: 20171121
  Transmission Date: 20180321
  Serious: Yes (Other)
  Sender: FDA-Public Use
  Company Number: TR-SA-2017SA222221

PATIENT
  Age: 31 Year
  Sex: Female

DRUGS (3)
  1. PROZAC [Concomitant]
     Active Substance: FLUOXETINE HYDROCHLORIDE
     Route: 065
  2. AUBAGIO [Suspect]
     Active Substance: TERIFLUNOMIDE
     Indication: MULTIPLE SCLEROSIS
     Route: 048
     Dates: start: 20170519
  3. GABAPENTIN. [Concomitant]
     Active Substance: GABAPENTIN
     Route: 065

REACTIONS (8)
  - Dyspnoea [Unknown]
  - Thyroxine free decreased [Unknown]
  - Serum ferritin decreased [Unknown]
  - Tremor [Unknown]
  - Pericarditis [Unknown]
  - Palpitations [Unknown]
  - White blood cells urine [Unknown]
  - Fatigue [Unknown]

NARRATIVE: CASE EVENT DATE: 201710
